FAERS Safety Report 8251007-8 (Version None)
Quarter: 2012Q2

REPORT INFORMATION
  Report Type: 
  Country: None (occurrence: None)
  Receive Date: 20120402
  Receipt Date: 20120329
  Transmission Date: 20120825
  Serious: No
  Sender: FDA-Public Use
  Company Number: US-PFIZER INC-2012081234

PATIENT
  Sex: Female
  Weight: 59.41 kg

DRUGS (3)
  1. EFFEXOR XR [Suspect]
     Indication: DEPRESSION
     Dosage: 75 MG, 2X/DAY
     Route: 048
  2. LISINOPRIL [Concomitant]
     Indication: HYPERTENSION
     Dosage: 20 MG, 1X/DAY
  3. EXTRA STRENGTH TYLENOL [Concomitant]
     Dosage: UNKNOWN DOSE, TAKEN THREE TIMES A DAY

REACTIONS (1)
  - FATIGUE [None]
